FAERS Safety Report 7514598-8 (Version None)
Quarter: 2011Q2

REPORT INFORMATION
  Report Type: 
  Country: None (occurrence: None)
  Receive Date: 20110422
  Receipt Date: 20100413
  Transmission Date: 20111010
  Serious: Yes (Disabling, Other)
  Sender: FDA-Public Use
  Company Number: APP201000269

PATIENT
  Sex: Male

DRUGS (1)
  1. HEPARIN SODIUM [Suspect]
     Indication: PERICARDITIS CONSTRICTIVE
     Dosage: SEE IMAGE

REACTIONS (7)
  - GANGRENE [None]
  - EXTREMITY NECROSIS [None]
  - HEPARIN-INDUCED THROMBOCYTOPENIA [None]
  - DEEP VEIN THROMBOSIS [None]
  - PLATELET COUNT DECREASED [None]
  - PERIPHERAL ISCHAEMIA [None]
  - THROMBOSIS [None]
